FAERS Safety Report 20426255 (Version 1)
Quarter: 2022Q1

REPORT INFORMATION
  Report Type: Report from Study
  Country: US (occurrence: US)
  Receive Date: 20220204
  Receipt Date: 20220204
  Transmission Date: 20220423
  Serious: No
  Sender: FDA-Public Use
  Company Number: US-EXELIXIS-CABO-21040944

PATIENT
  Age: 66 Year
  Sex: Male

DRUGS (1)
  1. CABOMETYX [Suspect]
     Active Substance: CABOZANTINIB S-MALATE
     Indication: Renal cancer
     Dosage: 60 MG, QD
     Route: 048
     Dates: start: 202105, end: 20210715

REACTIONS (9)
  - Liver injury [Unknown]
  - Laziness [Unknown]
  - Ulcer [Unknown]
  - Stomatitis [Unknown]
  - Constipation [Unknown]
  - Fatigue [Unknown]
  - Abdominal pain upper [Unknown]
  - Headache [Unknown]
  - Nausea [Unknown]

NARRATIVE: CASE EVENT DATE: 20210511
